FAERS Safety Report 13716253 (Version 1)
Quarter: 2017Q3

REPORT INFORMATION
  Report Type: Spontaneous
  Country: GB (occurrence: GB)
  Receive Date: 20170705
  Receipt Date: 20170705
  Transmission Date: 20171127
  Serious: Yes (Life-Threatening, Other)
  Sender: FDA-Public Use
  Company Number: GB-AUROBINDO-AUR-APL-2017-36345

PATIENT
  Age: 38 Year
  Sex: Female

DRUGS (2)
  1. VENLAFAXINE [Concomitant]
     Active Substance: VENLAFAXINE HYDROCHLORIDE
     Indication: DEPRESSED MOOD
     Dosage: 75 MG, OD (DOSE INCREASED TO 150MG ONCE DAILY)
     Route: 065
  2. OLANZAPINE. [Suspect]
     Active Substance: OLANZAPINE
     Indication: ANXIETY
     Route: 048
     Dates: start: 20170313, end: 20170403

REACTIONS (3)
  - Suicidal ideation [Recovered/Resolved]
  - Condition aggravated [Unknown]
  - Depressed mood [Unknown]

NARRATIVE: CASE EVENT DATE: 20170320
